FAERS Safety Report 9448766 (Version 3)
Quarter: 2014Q4

REPORT INFORMATION
  Report Type: Report from Study
  Country: TH (occurrence: TH)
  Receive Date: 20130808
  Receipt Date: 20141118
  Transmission Date: 20150529
  Serious: Yes (Hospitalization)
  Sender: FDA-Public Use
  Company Number: PHHO2013TH010262

PATIENT
  Age: 68 Year
  Sex: Female

DRUGS (4)
  1. CAFERGOT [Suspect]
     Active Substance: CAFFEINE\ERGOTAMINE TARTRATE
  2. FCC H5N1 TURKEY [Suspect]
     Active Substance: INFLUENZA VIRUS VACCINE
     Dosage: .5 ML
     Route: 030
     Dates: start: 20130325, end: 20130325
  3. CHLORPROMAZINE [Concomitant]
     Active Substance: CHLORPROMAZINE
     Indication: MIGRAINE
     Dosage: 25 MG, H2
     Route: 048
     Dates: start: 20130711
  4. FCC H5N1 TURKEY [Suspect]
     Active Substance: INFLUENZA VIRUS VACCINE
     Indication: IMMUNISATION
     Dosage: .5 ML
     Route: 030
     Dates: start: 20130304, end: 20130304

REACTIONS (1)
  - Headache [Recovering/Resolving]

NARRATIVE: CASE EVENT DATE: 20130711
